FAERS Safety Report 20323409 (Version 1)
Quarter: 2022Q1

REPORT INFORMATION
  Report Type: Spontaneous
  Country: US (occurrence: None)
  Receive Date: 20220111
  Receipt Date: 20220111
  Transmission Date: 20220423
  Serious: No
  Sender: FDA-Public Use
  Company Number: None

PATIENT
  Age: 73 Year
  Sex: Male
  Weight: 84.37 kg

DRUGS (1)
  1. SIMVASTATIN [Suspect]
     Active Substance: SIMVASTATIN
     Dosage: FREQUENCY : AT BEDTIME;?
     Route: 048
     Dates: start: 20210408, end: 20211027

REACTIONS (1)
  - Myalgia [None]

NARRATIVE: CASE EVENT DATE: 20211028
